FAERS Safety Report 19908270 (Version 3)
Quarter: 2021Q4

REPORT INFORMATION
  Report Type: Spontaneous
  Country: US (occurrence: US)
  Receive Date: 20211002
  Receipt Date: 20211029
  Transmission Date: 20220303
  Serious: Yes (Other)
  Sender: FDA-Public Use
  Company Number: US-MALLINCKRODT PHARMACEUTICALS-T202104198

PATIENT
  Age: 8 Month
  Sex: Male
  Weight: 5 kg

DRUGS (17)
  1. H.P. ACTHAR [Suspect]
     Active Substance: CORTICOTROPIN
     Indication: Infantile spasms
     Dosage: 0.36 MILLILITER (28.8 UNITS), BID, DAY 1 TO 14
     Route: 030
     Dates: start: 20210908, end: 202109
  2. H.P. ACTHAR [Suspect]
     Active Substance: CORTICOTROPIN
     Dosage: 0.14 MILLILITER (11.2 UNITS), QD IN MORNING; DAY 15 TO 17
     Route: 030
     Dates: start: 202109, end: 202109
  3. H.P. ACTHAR [Suspect]
     Active Substance: CORTICOTROPIN
     Dosage: 0.07 MILLILITER(5.6 UNITS), QD IN MORNING, DAY 18 TO 20
     Route: 030
     Dates: start: 202109, end: 202109
  4. H.P. ACTHAR [Suspect]
     Active Substance: CORTICOTROPIN
     Dosage: 0.05 MILLILITER (4 UNITS), QD IN MORNING, DAY 21 TO 23
     Route: 030
     Dates: start: 202109, end: 2021
  5. H.P. ACTHAR [Suspect]
     Active Substance: CORTICOTROPIN
     Dosage: 0.05 MILLILITER, QOD
     Route: 065
     Dates: start: 2021
  6. OXYGEN [Concomitant]
     Active Substance: OXYGEN
     Indication: Product used for unknown indication
     Dosage: UNK
     Route: 065
  7. CLONIDINE HYDROCHLORIDE [Concomitant]
     Active Substance: CLONIDINE HYDROCHLORIDE
     Indication: Product used for unknown indication
     Dosage: UNK
     Route: 065
  8. CLONIDINE HYDROCHLORIDE [Concomitant]
     Active Substance: CLONIDINE HYDROCHLORIDE
     Dosage: UNK,DOSE DECREASED
     Route: 065
  9. D4000 [Concomitant]
     Indication: Product used for unknown indication
     Dosage: 10 MICROGRAM
     Route: 065
  10. ACETAMINOPHEN [Concomitant]
     Active Substance: ACETAMINOPHEN
     Indication: Product used for unknown indication
     Dosage: 160 MILLIGRAM/5ML
     Route: 048
  11. KEPPRA [Concomitant]
     Active Substance: LEVETIRACETAM
     Indication: Product used for unknown indication
     Dosage: 100 MILLIGRAM PER MILLILITRE
     Route: 065
  12. KEPPRA [Concomitant]
     Active Substance: LEVETIRACETAM
     Dosage: DOSE INCREASED
     Route: 065
  13. PEPCID [Concomitant]
     Active Substance: FAMOTIDINE
     Indication: Product used for unknown indication
     Dosage: 20 MILLIGRAM
     Route: 065
  14. ALBUTEROL SULFATE [Concomitant]
     Active Substance: ALBUTEROL SULFATE
     Indication: Product used for unknown indication
     Dosage: UNK
     Route: 065
  15. FLOVENT HFA [Concomitant]
     Active Substance: FLUTICASONE PROPIONATE
     Indication: Product used for unknown indication
     Dosage: 44 MICROGRAM AER W/ADAP
     Route: 065
  16. SYNAGIS [Concomitant]
     Active Substance: PALIVIZUMAB
     Indication: Product used for unknown indication
     Dosage: UNK
     Route: 065
  17. DIASTATIN [Concomitant]
     Indication: Product used for unknown indication
     Dosage: UNK
     Route: 065

REACTIONS (5)
  - Bradycardia [Unknown]
  - Respiration abnormal [Unknown]
  - Seizure [Unknown]
  - Dyspnoea [Unknown]
  - Viral diarrhoea [Unknown]

NARRATIVE: CASE EVENT DATE: 20210901
